FAERS Safety Report 5965839-X (Version None)
Quarter: 2008Q4

REPORT INFORMATION
  Report Type: 
  Country: None (occurrence: None)
  Receive Date: 20081125
  Receipt Date: 20081114
  Transmission Date: 20090506
  Serious: Yes (Hospitalization)
  Sender: FDA-Public Use
  Company Number: US-BIOGENIDEC-2008BI025977

PATIENT
  Age: 33 Year
  Sex: Male

DRUGS (7)
  1. TYSABRI [Suspect]
     Indication: MULTIPLE SCLEROSIS
     Route: 042
     Dates: start: 20080630, end: 20080825
  2. TYSABRI [Suspect]
     Route: 042
     Dates: start: 20050201, end: 20050201
  3. TYSABRI [Suspect]
     Route: 042
     Dates: start: 20081023
  4. AVONEX [Concomitant]
     Indication: MULTIPLE SCLEROSIS
     Dates: start: 20020204
  5. DITROPAN [Concomitant]
  6. ADVIL [Concomitant]
  7. PAXIL [Concomitant]

REACTIONS (6)
  - ENTEROCOCCAL INFECTION [None]
  - PSEUDOMONAS INFECTION [None]
  - RENAL CELL CARCINOMA [None]
  - SMALL INTESTINAL OBSTRUCTION [None]
  - TACHYCARDIA [None]
  - WOUND DEHISCENCE [None]
